FAERS Safety Report 7569162-1 (Version None)
Quarter: 2011Q2

REPORT INFORMATION
  Report Type: 
  Country: None (occurrence: None)
  Receive Date: 20110623
  Receipt Date: 20110610
  Transmission Date: 20111010
  Serious: Yes (Hospitalization, Other)
  Sender: FDA-Public Use
  Company Number: PHHY2011CO53908

PATIENT
  Sex: Female

DRUGS (6)
  1. METOPROLOL TARTRATE [Concomitant]
  2. PROCTO-GLYVENOL [Suspect]
     Indication: HAEMORRHOIDS
     Dosage: 5 G, UNK
  3. OMEPRAZOLE [Concomitant]
  4. SANDOSTATIN LAR [Suspect]
     Dosage: 0.1 MG, EACH 8 HOURS
     Route: 030
     Dates: start: 20110401
  5. SANDOSTATIN LAR [Suspect]
     Indication: NEUROENDOCRINE TUMOUR
     Route: 030
     Dates: start: 20110404
  6. SANDOSTATIN LAR [Suspect]
     Dosage: 20 MG, UNK
     Route: 030
     Dates: start: 20110520

REACTIONS (5)
  - WEIGHT DECREASED [None]
  - ASTHENIA [None]
  - DIARRHOEA [None]
  - TACHYCARDIA [None]
  - HYPOTENSION [None]
